FAERS Safety Report 18480054 (Version 1)
Quarter: 2020Q4

REPORT INFORMATION
  Report Type: Spontaneous
  Country: US (occurrence: US)
  Receive Date: 20201109
  Receipt Date: 20201109
  Transmission Date: 20210114
  Serious: Yes (Hospitalization)
  Sender: FDA-Public Use
  Company Number: None

PATIENT
  Age: 62 Year
  Sex: Female

DRUGS (18)
  1. CEFAOROXIL [Concomitant]
  2. DULOXETINE. [Concomitant]
     Active Substance: DULOXETINE
  3. FOLIC ACID. [Concomitant]
     Active Substance: FOLIC ACID
  4. OXYCODONE [Concomitant]
     Active Substance: OXYCODONE
  5. TIZANIDINE. [Concomitant]
     Active Substance: TIZANIDINE
  6. ACTEMRA [Suspect]
     Active Substance: TOCILIZUMAB
     Indication: RHEUMATOID ARTHRITIS
     Route: 058
     Dates: start: 20200219
  7. METHOCARBAM [Concomitant]
     Active Substance: METHOCARBAMOL
  8. OXYCODONE AND ACETAMINOPHEN [Concomitant]
     Active Substance: ACETAMINOPHEN\OXYCODONE HYDROCHLORIDE
  9. CIPROFLOXACIN. [Concomitant]
     Active Substance: CIPROFLOXACIN
  10. HYDROXYCHLOR [Concomitant]
     Active Substance: HYDROXYCHLOROQUINE
  11. PREDNISONE. [Concomitant]
     Active Substance: PREDNISONE
  12. PREGABALIN. [Concomitant]
     Active Substance: PREGABALIN
  13. NITROFURANTIN [Concomitant]
     Active Substance: NITROFURANTOIN
  14. FLUCONAZOLE. [Concomitant]
     Active Substance: FLUCONAZOLE
  15. METHOTREXATE. [Concomitant]
     Active Substance: METHOTREXATE
  16. PANTOPRAZOLE [Concomitant]
     Active Substance: PANTOPRAZOLE
  17. PRAMIPEXOLE. [Concomitant]
     Active Substance: PRAMIPEXOLE
  18. PREMPRO [Concomitant]
     Active Substance: ESTROGENS, CONJUGATED\MEDROXYPROGESTERONE ACETATE

REACTIONS (1)
  - Diverticulitis [None]

NARRATIVE: CASE EVENT DATE: 20201015
